FAERS Safety Report 6285031-1 (Version None)
Quarter: 2009Q3

REPORT INFORMATION
  Report Type: 
  Country: None (occurrence: None)
  Receive Date: 20090727
  Receipt Date: 20090715
  Transmission Date: 20100115
  Serious: Yes (Other)
  Sender: FDA-Public Use
  Company Number: US-BAYER-200912171BCC

PATIENT
  Age: 78 Year
  Sex: Female
  Weight: 91 kg

DRUGS (9)
  1. ASPIRIN [Suspect]
     Indication: HEADACHE
     Route: 048
  2. ADVIL [Suspect]
     Indication: DRUG USE FOR UNKNOWN INDICATION
     Route: 065
  3. CITRACAL MAXIMUM CAPLETS + D [Suspect]
     Indication: VITAMIN SUPPLEMENTATION
     Dosage: TOTAL DAILY DOSE: 1 DF
     Route: 048
     Dates: start: 20090711, end: 20090715
  4. PREVACID [Concomitant]
     Indication: DRUG USE FOR UNKNOWN INDICATION
     Route: 065
  5. CENTRUM SILVER [Concomitant]
     Indication: DRUG USE FOR UNKNOWN INDICATION
     Route: 065
  6. MULTIVITAMIN [Concomitant]
     Indication: DRUG USE FOR UNKNOWN INDICATION
     Route: 065
  7. FLUDROCORTISONE [Concomitant]
     Indication: DRUG USE FOR UNKNOWN INDICATION
     Route: 065
  8. PLAVIX [Concomitant]
     Indication: DRUG USE FOR UNKNOWN INDICATION
     Dosage: UNIT DOSE: 75 MG
     Route: 065
  9. TYLENOL [Concomitant]
     Indication: DRUG USE FOR UNKNOWN INDICATION
     Route: 065

REACTIONS (2)
  - ABDOMINAL PAIN UPPER [None]
  - GASTRIC ULCER [None]
